FAERS Safety Report 5236027-X (Version None)
Quarter: 2007Q1

REPORT INFORMATION
  Report Type: 
  Country: None (occurrence: None)
  Receive Date: 20061208
  Receipt Date: 20060523
  Transmission Date: 20070707
  Serious: Yes (Other)
  Sender: FDA-Public Use
  Company Number: 2006UW10075

PATIENT
  Age: 65 Year
  Sex: Male
  Weight: 96.161 kg

DRUGS (4)
  1. CRESTOR [Suspect]
     Dosage: 10 MG PO
     Route: 048
  2. OXYGEN [Concomitant]
  3. COUMADIN ^ROOTS^ [Concomitant]
  4. M.V.I. [Concomitant]

REACTIONS (2)
  - ARTHRALGIA [None]
  - MYALGIA [None]
